FAERS Safety Report 24124798 (Version 1)
Quarter: 2024Q3

REPORT INFORMATION
  Report Type: Report from Study
  Country: US (occurrence: None)
  Receive Date: 20240723
  Receipt Date: 20240723
  Transmission Date: 20241017
  Serious: Yes (Other)
  Sender: ASTRAZENECA
  Company Number: 2021A365800

PATIENT
  Sex: Female

DRUGS (1)
  1. TAGRISSO [Suspect]
     Active Substance: OSIMERTINIB
     Indication: Lung carcinoma cell type unspecified stage 0
     Route: 048
     Dates: start: 2019

REACTIONS (5)
  - Intestinal obstruction [Unknown]
  - Pain in extremity [Unknown]
  - Gait disturbance [Unknown]
  - Sensitive skin [Unknown]
  - Insurance issue [Unknown]
